FAERS Safety Report 17635362 (Version 2)
Quarter: 2020Q2

REPORT INFORMATION
  Report Type: Spontaneous
  Country: GB (occurrence: GB)
  Receive Date: 20200407
  Receipt Date: 20200518
  Transmission Date: 20200713
  Serious: Yes (Other)
  Sender: FDA-Public Use
  Company Number: GB-009507513-2004GBR000865

PATIENT
  Age: 41 Year
  Sex: Male

DRUGS (2)
  1. ISENTRESS [Suspect]
     Active Substance: RALTEGRAVIR POTASSIUM
     Dosage: 600 MG
     Route: 048
  2. EMTRICITABINE (+) TENOFOVIR [Suspect]
     Active Substance: EMTRICITABINE\TENOFOVIR
     Dosage: 200/245 (UNIT NOT PROVIDED)
     Route: 048

REACTIONS (10)
  - Asthenia [Unknown]
  - Influenza [Unknown]
  - Headache [Unknown]
  - Pain [Unknown]
  - Feeling of body temperature change [Unknown]
  - Feeling abnormal [Unknown]
  - Malaise [Unknown]
  - Decreased appetite [Unknown]
  - Lower respiratory tract infection [Unknown]
  - Fatigue [Unknown]

NARRATIVE: CASE EVENT DATE: 202003
